FAERS Safety Report 14786562 (Version 1)
Quarter: 2018Q2

REPORT INFORMATION
  Report Type: Spontaneous
  Country: US (occurrence: US)
  Receive Date: 20180420
  Receipt Date: 20180420
  Transmission Date: 20180711
  Serious: No
  Sender: FDA-Public Use
  Company Number: US-SA-2018SA106126

PATIENT

DRUGS (7)
  1. HUMIRA [Concomitant]
     Active Substance: ADALIMUMAB
  2. ORENCIA [Concomitant]
     Active Substance: ABATACEPT
  3. ENBREL [Concomitant]
     Active Substance: ETANERCEPT
  4. KEVZARA [Suspect]
     Active Substance: SARILUMAB
     Route: 058
  5. METHOTREXATE. [Concomitant]
     Active Substance: METHOTREXATE
  6. XELJANZ [Concomitant]
     Active Substance: TOFACITINIB CITRATE
  7. ACTEMRA [Concomitant]
     Active Substance: TOCILIZUMAB

REACTIONS (1)
  - Drug ineffective [Unknown]
